FAERS Safety Report 17228135 (Version 2)
Quarter: 2020Q1

REPORT INFORMATION
  Report Type: Spontaneous
  Country: CA (occurrence: CA)
  Receive Date: 20200103
  Receipt Date: 20200314
  Transmission Date: 20200409
  Serious: Yes (Other)
  Sender: FDA-Public Use
  Company Number: CA-CELLTRION INC.-2019CA027080

PATIENT

DRUGS (3)
  1. INFLECTRA [Suspect]
     Active Substance: INFLIXIMAB-DYYB
     Indication: COLITIS ULCERATIVE
     Dosage: 400 MG, 0, 2, 6 AND THEN EVERY 8 WEEKS
     Route: 042
     Dates: start: 20191122, end: 20191206
  2. INFLECTRA [Suspect]
     Active Substance: INFLIXIMAB-DYYB
     Dosage: 400 MG, 0, 2, 6 AND THEN EVERY 8 WEEKS
     Route: 042
     Dates: start: 20191206
  3. PREDNISONE. [Concomitant]
     Active Substance: PREDNISONE
     Dosage: UNK(FOR A MONTH)
     Route: 065

REACTIONS (3)
  - Deafness [Unknown]
  - Off label use [Unknown]
  - Incorrect dose administered [Unknown]
